FAERS Safety Report 9661329 (Version 2)
Quarter: 2013Q4

REPORT INFORMATION
  Report Type: Report from Study
  Country: NL (occurrence: NL)
  Receive Date: 20131031
  Receipt Date: 20131113
  Transmission Date: 20140711
  Serious: Yes (Death)
  Sender: FDA-Public Use
  Company Number: NL-ROCHE-1296320

PATIENT
  Age: 53 Year
  Sex: Male
  Weight: 86 kg

DRUGS (8)
  1. BEVACIZUMAB [Suspect]
     Indication: GLIOBLASTOMA MULTIFORME
     Dosage: DATE OF LAST DOSE: 2/APR/2013
     Route: 042
     Dates: start: 20110208
  2. LOMUSTINE [Suspect]
     Indication: GLIOBLASTOMA MULTIFORME
     Dosage: DAT OF LAST DOSE:27/SEP/2012
     Route: 048
     Dates: start: 20110208
  3. NIFEDIPINE [Concomitant]
     Indication: HYPERTENSION
     Dosage: LAST DOSE: 7/APR/2013
     Route: 048
     Dates: start: 20110720
  4. HYDROCHLOROTHIAZIDE [Concomitant]
     Indication: HYPERTENSION
     Dosage: LAST DOSE: 7/APR/2013
     Route: 048
  5. DEXAMETHASON [Concomitant]
     Dosage: LAST DOSE: 7/APR/2013
     Route: 048
  6. DIACEPAM [Concomitant]
     Dosage: LAST DOSE: 7/APR/2013
     Route: 048
  7. FRAXODI [Concomitant]
     Dosage: LAST DOSE: 7/APR/2013
     Route: 048
  8. PANTOPRAZOL [Concomitant]
     Dosage: LAST DOSE: 7/APR/2013
     Route: 048

REACTIONS (1)
  - Death [Fatal]
